FAERS Safety Report 5048752-4 (Version None)
Quarter: 2006Q3

REPORT INFORMATION
  Report Type: 
  Country: None (occurrence: None)
  Receive Date: 20060705
  Receipt Date: 20060626
  Transmission Date: 20061208
  Serious: Yes (Hospitalization, Other)
  Sender: FDA-Public Use
  Company Number: DEWYE799226JUN06

PATIENT
  Age: 50 Year
  Sex: Male

DRUGS (9)
  1. VENLAFAXINE HCL [Suspect]
     Indication: DEPRESSION
     Dosage: SEE IMAGE
     Route: 048
     Dates: start: 20050119, end: 20050124
  2. VENLAFAXINE HCL [Suspect]
     Indication: DEPRESSION
     Dosage: SEE IMAGE
     Route: 048
     Dates: start: 20050125, end: 20050201
  3. VENLAFAXINE HCL [Suspect]
     Indication: DEPRESSION
     Dosage: SEE IMAGE
     Route: 048
     Dates: start: 20050206, end: 20050208
  4. VENLAFAXINE HCL [Suspect]
     Indication: DEPRESSION
     Dosage: SEE IMAGE
     Route: 048
     Dates: start: 20050209, end: 20050213
  5. VENLAFAXINE HCL [Suspect]
     Indication: DEPRESSION
     Dosage: SEE IMAGE
     Route: 048
     Dates: start: 20050214, end: 20050214
  6. LORAZEPAM [Suspect]
     Dosage: SEE  IMAGE
     Route: 048
     Dates: start: 20050119, end: 20050127
  7. LORAZEPAM [Suspect]
     Dosage: SEE  IMAGE
     Route: 048
     Dates: start: 20050128, end: 20050128
  8. LORAZEPAM [Suspect]
     Dosage: SEE  IMAGE
     Route: 048
     Dates: start: 20050129, end: 20050131
  9. MELPERONE (MELPERONE) [Concomitant]

REACTIONS (5)
  - ABNORMAL BEHAVIOUR [None]
  - DELIRIUM [None]
  - DELUSION [None]
  - DRUG WITHDRAWAL SYNDROME [None]
  - SLEEP DISORDER [None]
